FAERS Safety Report 17404845 (Version 3)
Quarter: 2020Q1

REPORT INFORMATION
  Report Type: Report from Study
  Country: None (occurrence: NO)
  Receive Date: 20200211
  Receipt Date: 20200221
  Transmission Date: 20200409
  Serious: Yes (Death, Hospitalization, Other)
  Sender: FDA-Public Use
  Company Number: NO-ABBVIE-20K-122-3270268-00

PATIENT
  Age: 84 Year
  Sex: Female

DRUGS (2)
  1. DUODOPA [Suspect]
     Active Substance: CARBIDOPA\LEVODOPA
     Indication: PRODUCT USED FOR UNKNOWN INDICATION
     Route: 050
     Dates: start: 202001, end: 2020
  2. DUODOPA [Suspect]
     Active Substance: CARBIDOPA\LEVODOPA
     Dosage: STRENGTH (CMP): 20 MG/ML 5 MG/ML
     Route: 050
     Dates: start: 20200203

REACTIONS (10)
  - General physical condition abnormal [Unknown]
  - Underweight [Unknown]
  - Death [Fatal]
  - Abdominal sepsis [Unknown]
  - Procedural pain [Unknown]
  - Gastrostomy [Unknown]
  - Gastric perforation [Unknown]
  - Peritonitis [Unknown]
  - Post procedural complication [Unknown]
  - Intra-abdominal fluid collection [Unknown]

NARRATIVE: CASE EVENT DATE: 202002
